FAERS Safety Report 16005184 (Version 3)
Quarter: 2019Q2

REPORT INFORMATION
  Report Type: Spontaneous
  Country: US (occurrence: US)
  Receive Date: 20190226
  Receipt Date: 20190626
  Transmission Date: 20190711
  Serious: Yes (Other)
  Sender: FDA-Public Use
  Company Number: US-PFIZER INC-2019078667

PATIENT
  Age: 65 Year
  Sex: Female

DRUGS (1)
  1. NEURONTIN [Suspect]
     Active Substance: GABAPENTIN
     Dosage: 300 MG, DAILY (TAKE ONCE EVERY NIGHT)/TAKE 1 CAPSULE NIGHTLY
     Route: 048
     Dates: start: 20181212, end: 20181226

REACTIONS (5)
  - Mental status changes [Unknown]
  - Agitation [Unknown]
  - Drug hypersensitivity [Unknown]
  - Sleep disorder [Unknown]
  - Vertigo [Recovered/Resolved]

NARRATIVE: CASE EVENT DATE: 20181212
